FAERS Safety Report 5773981-1 (Version None)
Quarter: 2008Q2

REPORT INFORMATION
  Report Type: 
  Country: None (occurrence: None)
  Receive Date: 20080616
  Receipt Date: 20080605
  Transmission Date: 20081010
  Serious: Yes (Hospitalization)
  Sender: FDA-Public Use
  Company Number: US-AMGEN-QUU285030

PATIENT
  Sex: Female

DRUGS (4)
  1. ARANESP [Suspect]
     Indication: RENAL FAILURE CHRONIC
  2. COUMADIN [Concomitant]
  3. PLETAL [Concomitant]
  4. PLAVIX [Concomitant]

REACTIONS (3)
  - INJECTION SITE PAIN [None]
  - POOR PERIPHERAL CIRCULATION [None]
  - TOE AMPUTATION [None]
